FAERS Safety Report 7871613-X (Version None)
Quarter: 2011Q4

REPORT INFORMATION
  Report Type: 
  Country: None (occurrence: None)
  Receive Date: 20111027
  Receipt Date: 20111014
  Transmission Date: 20120403
  Serious: Yes (Hospitalization)
  Sender: FDA-Public Use
  Company Number: 1000024666

PATIENT
  Age: 35 Year
  Sex: Female

DRUGS (2)
  1. ANTIDIABETIC PILLS (NOS) [Concomitant]
  2. MEMANTINE HYDROCHLORIDE [Suspect]
     Dosage: (2000 MG,ONCE),ORAL
     Route: 048

REACTIONS (13)
  - HEADACHE [None]
  - SOMNOLENCE [None]
  - NYSTAGMUS [None]
  - RESPIRATORY ALKALOSIS [None]
  - TOXICITY TO VARIOUS AGENTS [None]
  - MYDRIASIS [None]
  - HYPERTENSION [None]
  - INTENTIONAL OVERDOSE [None]
  - LOSS OF CONSCIOUSNESS [None]
  - DIZZINESS [None]
  - DIPLOPIA [None]
  - TACHYCARDIA [None]
  - CONVULSION [None]
